FAERS Safety Report 9656981 (Version 3)
Quarter: 2013Q4

REPORT INFORMATION
  Report Type: Spontaneous
  Country: US (occurrence: US)
  Receive Date: 20131030
  Receipt Date: 20131211
  Transmission Date: 20140711
  Serious: No
  Sender: FDA-Public Use
  Company Number: US-PFIZER INC-2013308561

PATIENT
  Age: 53 Year
  Sex: Female
  Weight: 92.97 kg

DRUGS (1)
  1. XELJANZ [Suspect]
     Indication: RHEUMATOID ARTHRITIS
     Dosage: 5 MG, 2X/DAY
     Route: 048

REACTIONS (4)
  - Pain [Recovering/Resolving]
  - Dyspepsia [Unknown]
  - Fluid retention [Unknown]
  - Oedema [Unknown]
